FAERS Safety Report 12693611 (Version 3)
Quarter: 2016Q4

REPORT INFORMATION
  Report Type: Spontaneous
  Country: US (occurrence: US)
  Receive Date: 20160829
  Receipt Date: 20161218
  Transmission Date: 20170207
  Serious: No
  Sender: FDA-Public Use
  Company Number: US-009507513-1608USA010920

PATIENT
  Age: 23 Year
  Sex: Female
  Weight: 56.24 kg

DRUGS (1)
  1. NEXPLANON [Suspect]
     Active Substance: ETONOGESTREL
     Indication: CONTRACEPTION
     Dosage: 1 DF, EVERY 3 YEARS
     Route: 059
     Dates: start: 20151215

REACTIONS (12)
  - Dizziness [Unknown]
  - Headache [Unknown]
  - Back pain [Unknown]
  - Breast swelling [Unknown]
  - Implant site pain [Unknown]
  - Dysmenorrhoea [Unknown]
  - Nausea [Unknown]
  - Amenorrhoea [Recovered/Resolved]
  - Menorrhagia [Unknown]
  - Device breakage [Not Recovered/Not Resolved]
  - Mood swings [Unknown]
  - Breast tenderness [Unknown]

NARRATIVE: CASE EVENT DATE: 20160812
